FAERS Safety Report 18632575 (Version 2)
Quarter: 2021Q1

REPORT INFORMATION
  Report Type: Spontaneous
  Country: CZ (occurrence: CZ)
  Receive Date: 20201218
  Receipt Date: 20210203
  Transmission Date: 20210419
  Serious: Yes (Hospitalization, Other)
  Sender: FDA-Public Use
  Company Number: CZ-SA-2020SA346141

PATIENT
  Age: 76 Year
  Sex: Male

DRUGS (22)
  1. TENAXUM [Concomitant]
     Active Substance: RILMENIDINE
     Dosage: 1 DF
  2. FENTANYL. [Concomitant]
     Active Substance: FENTANYL
     Dosage: 25 UG, QH
  3. PRESTANCE [Concomitant]
     Active Substance: AMLODIPINE BESYLATE\PERINDOPRIL ARGININE
     Dosage: 1 DF
  4. HELICID [OMEPRAZOLE] [Concomitant]
     Active Substance: OMEPRAZOLE
     Dosage: 1 DF, QD (BEFORE MEALS)
  5. INADINE [Concomitant]
     Indication: FINGERPRINT LOSS
  6. TANTUM [BENZYDAMINE HYDROCHLORIDE] [Concomitant]
  7. CLEXANE [Concomitant]
     Active Substance: ENOXAPARIN SODIUM
  8. TAMSULOSIN [Concomitant]
     Active Substance: TAMSULOSIN
     Dosage: 1 DF
  9. ORAMELLOX [Concomitant]
     Active Substance: MELOXICAM
     Dosage: 1 DF, QD
  10. BETALOC SA [Concomitant]
     Dosage: 2 DF
  11. AGEN [Concomitant]
     Active Substance: AMLODIPINE BESYLATE
     Dosage: 1 DF
  12. PREDNISONE. [Concomitant]
     Active Substance: PREDNISONE
     Dosage: 1 DF
  13. ZODAC [Concomitant]
     Active Substance: CETIRIZINE HYDROCHLORIDE
     Dosage: 1 DF
  14. CALCICHEW D3 [Concomitant]
     Active Substance: CALCIUM\CHOLECALCIFEROL
     Dosage: 1 DF
  15. TRALGIT [Concomitant]
     Active Substance: TRAMADOL
     Dosage: 1150 DF, TID
  16. TANYZ [Concomitant]
     Active Substance: TAMSULOSIN HYDROCHLORIDE
  17. KEVZARA [Suspect]
     Active Substance: SARILUMAB
     Indication: RHEUMATOID ARTHRITIS
     Dosage: UNK
     Dates: end: 20200625
  18. GABANOX [Concomitant]
     Active Substance: GABAPENTIN
     Dosage: 1 DF
  19. VEROSPIRON [Concomitant]
     Active Substance: SPIRONOLACTONE
     Dosage: 1 DF
  20. PRESTARIUM NEO [Concomitant]
     Active Substance: PERINDOPRIL ARGININE
     Dosage: 1 DF
  21. TRITTICO [Concomitant]
     Active Substance: TRAZODONE HYDROCHLORIDE
     Dosage: 3 DF, QD
  22. TRAMAL [Concomitant]
     Active Substance: TRAMADOL
     Dosage: 1 DF, QD

REACTIONS (1)
  - Chronic kidney disease [Recovering/Resolving]

NARRATIVE: CASE EVENT DATE: 20200709
